FAERS Safety Report 8943683 (Version 2)
Quarter: 2013Q1

REPORT INFORMATION
  Report Type: Spontaneous
  Country: FR (occurrence: FR)
  Receive Date: 20121203
  Receipt Date: 20130107
  Transmission Date: 20140127
  Serious: Yes (Life-Threatening, Other)
  Sender: FDA-Public Use
  Company Number: FR-BAXTER-2012BAX025108

PATIENT
  Age: 63 Year
  Sex: Male

DRUGS (2)
  1. ENDOXAN 2000 MG, LYOPHILISAT POUR SOLUTION INJECTABLE [Suspect]
     Indication: ANTISYNTHETASE SYNDROME
     Route: 042
     Dates: start: 20121105
  2. UROMITEXAN [Concomitant]
     Indication: PRODUCT USED FOR UNKNOWN INDICATION
     Route: 065

REACTIONS (6)
  - Shock [Recovered/Resolved]
  - Erythema [Unknown]
  - Erythema [Unknown]
  - Chills [Unknown]
  - Blood pressure increased [Recovered/Resolved]
  - Pyrexia [Unknown]
